FAERS Safety Report 7012020-1 (Version None)
Quarter: 2010Q3

REPORT INFORMATION
  Report Type: 
  Country: None (occurrence: None)
  Receive Date: 20100924
  Receipt Date: 20100916
  Transmission Date: 20110219
  Serious: Yes (Hospitalization)
  Sender: FDA-Public Use
  Company Number: US-RB-013117-10

PATIENT
  Age: 32 Year
  Sex: Male

DRUGS (1)
  1. SUBOXONE [Suspect]
     Indication: PRODUCT USED FOR UNKNOWN INDICATION
     Dosage: DOSING DETAILS UNKNOWN
     Route: 065

REACTIONS (8)
  - ASTHENOPIA [None]
  - DIZZINESS [None]
  - DRUG DEPENDENCE [None]
  - ENDOCARDITIS [None]
  - INFLUENZA [None]
  - SEPSIS [None]
  - STRABISMUS [None]
  - VISION BLURRED [None]
